FAERS Safety Report 14963670 (Version 1)
Quarter: 2018Q2

REPORT INFORMATION
  Report Type: Spontaneous
  Country: NL (occurrence: US)
  Receive Date: 20180601
  Receipt Date: 20180601
  Transmission Date: 20180711
  Serious: Yes (Hospitalization, Other)
  Sender: FDA-Public Use
  Company Number: NL-PFIZER INC-2018216605

PATIENT
  Age: 7 Year
  Sex: Female

DRUGS (6)
  1. THALIDOMIDE [Suspect]
     Active Substance: THALIDOMIDE
     Indication: STILL^S DISEASE
     Dosage: UNK
  2. VARICELLA VACCINE (LIVE) [Suspect]
     Active Substance: VARICELLA-ZOSTER VIRUS STRAIN OKA/MERCK LIVE ANTIGEN
     Indication: IMMUNISATION
     Dosage: UNK
  3. METHOTREXATE SODIUM. [Suspect]
     Active Substance: METHOTREXATE SODIUM
     Indication: STILL^S DISEASE
     Dosage: UNK
  4. LEFLUNOMIDE. [Suspect]
     Active Substance: LEFLUNOMIDE
     Indication: STILL^S DISEASE
     Dosage: UNK
  5. ANAKINRA [Suspect]
     Active Substance: ANAKINRA
     Indication: STILL^S DISEASE
     Dosage: 4 MG, 1X/DAY
  6. PREDNISONE. [Suspect]
     Active Substance: PREDNISONE
     Indication: STILL^S DISEASE
     Dosage: 0.12 MG/KG, 1X/DAY

REACTIONS (1)
  - Varicella zoster virus infection [Unknown]
